FAERS Safety Report 9945327 (Version 1)
Quarter: 2014Q1

REPORT INFORMATION
  Report Type: Spontaneous
  Country: US (occurrence: US)
  Receive Date: 20140303
  Receipt Date: 20140303
  Transmission Date: 20141002
  Serious: No
  Sender: FDA-Public Use
  Company Number: US-AMGEN-USASP2013074189

PATIENT
  Sex: Female
  Weight: 82.54 kg

DRUGS (2)
  1. ENBREL [Suspect]
     Indication: RHEUMATOID ARTHRITIS
     Dosage: 50 MG, QWK
     Route: 058
     Dates: start: 20130711
  2. METHOTREXATE [Concomitant]
     Dosage: UNK
     Route: 065

REACTIONS (2)
  - Musculoskeletal pain [Not Recovered/Not Resolved]
  - Arthropathy [Recovered/Resolved]
